FAERS Safety Report 9803802 (Version 2)
Quarter: 2015Q1

REPORT INFORMATION
  Report Type: Spontaneous
  Country: US (occurrence: US)
  Receive Date: 20140108
  Receipt Date: 20150310
  Transmission Date: 20150721
  Serious: No
  Sender: FDA-Public Use
  Company Number: US-GLAXOSMITHKLINE-A1041665A

PATIENT
  Sex: Male

DRUGS (2)
  1. LOVAZA [Suspect]
     Active Substance: OMEGA-3-ACID ETHYL ESTERS
     Dosage: 1 G, U
     Dates: start: 2009
  2. LOVAZA [Suspect]
     Active Substance: OMEGA-3-ACID ETHYL ESTERS
     Indication: PRODUCT USED FOR UNKNOWN INDICATION
     Dosage: 1 GM STRENGTH/ CAPSULE. PRESCRIBED ^2 CAPSULES PER DAY^ BUT PATIENT HAD BEEN TAKING ^4 CAPSULES[...]
     Dates: start: 201206

REACTIONS (7)
  - Palpitations [Unknown]
  - Anxiety [Unknown]
  - Memory impairment [Unknown]
  - Incorrect dosage administered [Unknown]
  - Cardiac disorder [Unknown]
  - Arthralgia [Unknown]
  - Expired product administered [Unknown]
